FAERS Safety Report 8599213-7 (Version None)
Quarter: 2012Q3

REPORT INFORMATION
  Report Type: 
  Country: None (occurrence: None)
  Receive Date: 20120816
  Receipt Date: 20111021
  Transmission Date: 20120928
  Serious: No
  Sender: FDA-Public Use
  Company Number: US-AMGEN-USASP2011054545

PATIENT
  Age: 60 Year
  Sex: Female

DRUGS (2)
  1. NEUPOGEN [Suspect]
     Indication: HEPATITIS C
     Dosage: 480 MUG, QWK
     Dates: start: 20111013
  2. PEGASYS [Concomitant]

REACTIONS (2)
  - INJECTION SITE PAIN [None]
  - INJECTION SITE DISCOMFORT [None]
